FAERS Safety Report 15010525 (Version 1)
Quarter: 2018Q2

REPORT INFORMATION
  Report Type: Spontaneous
  Country: DE (occurrence: DE)
  Receive Date: 20180614
  Receipt Date: 20180614
  Transmission Date: 20180711
  Serious: Yes (Other)
  Sender: FDA-Public Use
  Company Number: DE-AUROBINDO-AUR-APL-2018-031140

PATIENT
  Age: 78 Year
  Sex: Female

DRUGS (9)
  1. VESIKUR [Interacting]
     Active Substance: SOLIFENACIN SUCCINATE
     Indication: URINARY INCONTINENCE
     Dosage: 5 MILLIGRAM, TWO TIMES A DAY (MORNING AND EVENING)
     Route: 048
     Dates: start: 20180110, end: 20180220
  2. XARELTO [Concomitant]
     Active Substance: RIVAROXABAN
     Indication: EMBOLISM
     Dosage: 20 MILLIGRAM, ONCE A DAY (MORNING)
     Route: 048
     Dates: start: 2015
  3. DULOXETINE. [Suspect]
     Active Substance: DULOXETINE
     Indication: DEPRESSION
     Dosage: 60 MILLIGRAM, ONCE A DAY (MORNING)
     Route: 048
     Dates: start: 2016
  4. VESIKUR [Interacting]
     Active Substance: SOLIFENACIN SUCCINATE
     Dosage: 5 MG, ONCE DAILY (EVENING)
     Route: 048
     Dates: start: 20180308, end: 20180314
  5. VESIKUR [Interacting]
     Active Substance: SOLIFENACIN SUCCINATE
     Dosage: 5 MILLIGRAM
     Route: 065
  6. VESIKUR [Interacting]
     Active Substance: SOLIFENACIN SUCCINATE
     Dosage: 2.5 MG, ONCE DAILY (EVENING)
     Route: 048
     Dates: start: 20180315
  7. MIRTAZAPIN [Concomitant]
     Active Substance: MIRTAZAPINE
     Indication: DEPRESSION
     Dosage: 7.5 MILLIGRAM, ONCE A DAY (EVENING)
     Route: 048
     Dates: start: 20171103
  8. VESIKUR [Interacting]
     Active Substance: SOLIFENACIN SUCCINATE
     Dosage: 2.5 MILLIGRAM
     Route: 065
  9. VESIKUR [Interacting]
     Active Substance: SOLIFENACIN SUCCINATE
     Dosage: 10 MG, ONCE DAILY (IN EVENING)
     Route: 048
     Dates: start: 20180221, end: 20180307

REACTIONS (9)
  - Anxiety [Recovered/Resolved]
  - Overdose [Unknown]
  - Drug interaction [Unknown]
  - Nightmare [Recovered/Resolved]
  - Derealisation [Recovering/Resolving]
  - Confusional state [Unknown]
  - Dysarthria [Unknown]
  - Vision blurred [Unknown]
  - Fatigue [Not Recovered/Not Resolved]

NARRATIVE: CASE EVENT DATE: 20180303
